FAERS Safety Report 19213478 (Version 2)
Quarter: 2022Q2

REPORT INFORMATION
  Report Type: Spontaneous
  Country: US (occurrence: US)
  Receive Date: 20210504
  Receipt Date: 20220414
  Transmission Date: 20220720
  Serious: No
  Sender: FDA-Public Use
  Company Number: US-PFIZER INC-2021253480

PATIENT
  Age: 88 Year
  Sex: Female

DRUGS (2)
  1. SUTENT [Suspect]
     Active Substance: SUNITINIB MALATE
     Dosage: 37.5 MG
  2. SUTENT [Suspect]
     Active Substance: SUNITINIB MALATE
     Dosage: 37.5 MG(1 Q AM X 14 DAYS PAUSE + RESTART Q 28D FOR 6 MONTHS )
     Route: 048

REACTIONS (3)
  - Memory impairment [Unknown]
  - Mental disorder [Unknown]
  - Confusional state [Unknown]
